FAERS Safety Report 6938941-3 (Version None)
Quarter: 2010Q3

REPORT INFORMATION
  Report Type: 
  Country: None (occurrence: None)
  Receive Date: 20100824
  Receipt Date: 20100819
  Transmission Date: 20110219
  Serious: No
  Sender: FDA-Public Use
  Company Number: US-TEVA-245551USA

PATIENT
  Age: 15 Year
  Sex: Female

DRUGS (1)
  1. ALBUTEROL SULFATE AUTOHALER [Suspect]
     Indication: ASTHMA EXERCISE INDUCED
     Dosage: AS NEEDED
     Route: 055
     Dates: start: 20090801

REACTIONS (3)
  - DYSPHAGIA [None]
  - DYSPNOEA [None]
  - SINUS HEADACHE [None]
